FAERS Safety Report 14482168 (Version 1)
Quarter: 2018Q1

REPORT INFORMATION
  Report Type: Report from Study
  Country: CA (occurrence: CA)
  Receive Date: 20180202
  Receipt Date: 20180202
  Transmission Date: 20180509
  Serious: Yes (Death, Hospitalization)
  Sender: FDA-Public Use
  Company Number: CA-ACTELION-A-US2017-154501

PATIENT
  Age: 65 Year
  Sex: Female
  Weight: 75.28 kg

DRUGS (15)
  1. LANTUS [Concomitant]
     Active Substance: INSULIN GLARGINE
  2. TELMISARTAN. [Concomitant]
     Active Substance: TELMISARTAN
  3. GARLIC. [Concomitant]
     Active Substance: GARLIC
  4. DIGESTIVE ENZYME [Concomitant]
     Active Substance: UNSPECIFIED INGREDIENT
  5. ADVAIR HFA [Concomitant]
     Active Substance: FLUTICASONE PROPIONATE\SALMETEROL XINAFOATE
     Dosage: UNK, PRN
  6. AERIUS [Concomitant]
     Active Substance: DESLORATADINE
     Dosage: UNK, PRN
  7. NASONEX [Concomitant]
     Active Substance: MOMETASONE FUROATE
  8. SYNTHROID [Concomitant]
     Active Substance: LEVOTHYROXINE SODIUM
  9. NASALINE PLUS [Concomitant]
  10. FUROSEMIDE. [Concomitant]
     Active Substance: FUROSEMIDE
  11. TRACLEER [Suspect]
     Active Substance: BOSENTAN
     Indication: PULMONARY ARTERIAL HYPERTENSION
     Dosage: 125 MG, BID
     Route: 048
     Dates: start: 20170215
  12. MULTIVITAMIN [Concomitant]
     Active Substance: VITAMINS
  13. OMEGA 3 [Concomitant]
     Active Substance: OMEGA-3 FATTY ACIDS
  14. NOVORAPID [Concomitant]
     Active Substance: INSULIN ASPART
  15. IMURAN [Concomitant]
     Active Substance: AZATHIOPRINE

REACTIONS (4)
  - Ascites [Unknown]
  - Disease progression [Fatal]
  - Pulmonary hypertension [Fatal]
  - Cardiomegaly [Unknown]
